FAERS Safety Report 13439068 (Version 1)
Quarter: 2017Q2

REPORT INFORMATION
  Report Type: Spontaneous
  Country: US (occurrence: US)
  Receive Date: 20170413
  Receipt Date: 20170413
  Transmission Date: 20170830
  Serious: Yes (Hospitalization)
  Sender: FDA-Public Use
  Company Number: US-ROCHE-1261538

PATIENT
  Age: 54 Year
  Sex: Female
  Weight: 56.75 kg

DRUGS (12)
  1. SYNERCID [Suspect]
     Active Substance: DALFOPRISTIN\QUINUPRISTIN
     Indication: OFF LABEL USE
  2. HEPARIN [Concomitant]
     Active Substance: HEPARIN SODIUM
  3. VANCOMYCIN [Suspect]
     Active Substance: VANCOMYCIN
     Indication: OSTEOMYELITIS
     Route: 065
     Dates: start: 20130622, end: 20130703
  4. DAPTOMYCIN. [Suspect]
     Active Substance: DAPTOMYCIN
     Indication: ENDOCARDITIS
     Route: 065
     Dates: start: 20130703, end: 20130708
  5. ZYVOX [Suspect]
     Active Substance: LINEZOLID
     Indication: OSTEOMYELITIS
     Route: 065
     Dates: start: 20130711, end: 20130726
  6. SYNERCID [Suspect]
     Active Substance: DALFOPRISTIN\QUINUPRISTIN
     Indication: OSTEOMYELITIS
  7. ROCEPHIN [Suspect]
     Active Substance: CEFTRIAXONE SODIUM
     Indication: ENDOCARDITIS
     Route: 065
     Dates: start: 20130708, end: 20130711
  8. DAPTOMYCIN. [Suspect]
     Active Substance: DAPTOMYCIN
     Indication: OSTEOMYELITIS
  9. ZYVOX [Suspect]
     Active Substance: LINEZOLID
     Indication: ENDOCARDITIS
  10. ROCEPHIN [Suspect]
     Active Substance: CEFTRIAXONE SODIUM
     Indication: OSTEOMYELITIS
  11. VANCOMYCIN [Suspect]
     Active Substance: VANCOMYCIN
     Indication: ENDOCARDITIS
  12. SYNERCID [Suspect]
     Active Substance: DALFOPRISTIN\QUINUPRISTIN
     Indication: ENDOCARDITIS
     Route: 065
     Dates: start: 20130726

REACTIONS (9)
  - Pyrexia [Unknown]
  - Anaemia [Unknown]
  - Rash generalised [Unknown]
  - Drug ineffective [Unknown]
  - Weight bearing difficulty [Unknown]
  - Platelet count decreased [Recovered/Resolved]
  - White blood cell count increased [Unknown]
  - Abasia [Unknown]
  - Rash [Unknown]

NARRATIVE: CASE EVENT DATE: 20130629
